FAERS Safety Report 5339380-1 (Version None)
Quarter: 2007Q2

REPORT INFORMATION
  Report Type: 
  Country: None (occurrence: None)
  Receive Date: 20070322
  Receipt Date: 20061004
  Transmission Date: 20071010
  Serious: Yes (Other)
  Sender: FDA-Public Use
  Company Number: 200613785BCC

PATIENT
  Age: 69 Year
  Sex: Female
  Weight: 83.0083 kg

DRUGS (5)
  1. ALEVE (CAPLET) [Suspect]
     Indication: ARTHRITIS
     Dosage: 220 MG, QD; ORAL
     Route: 048
  2. SYNTHROID [Concomitant]
  3. LISINOPRIL AND HYDROCHLOROTHIAZIDE [Concomitant]
  4. ATENOLOL [Concomitant]
  5. ZOCOR [Concomitant]

REACTIONS (6)
  - ABDOMINAL PAIN [None]
  - COLD SWEAT [None]
  - DIARRHOEA [None]
  - DIZZINESS [None]
  - FEELING COLD [None]
  - HAEMATOCHEZIA [None]
